FAERS Safety Report 5273082-5 (Version None)
Quarter: 2007Q1

REPORT INFORMATION
  Report Type: 
  Country: None (occurrence: None)
  Receive Date: 20070322
  Receipt Date: 20070314
  Transmission Date: 20070707
  Serious: Yes (Hospitalization)
  Sender: FDA-Public Use
  Company Number: VE-ABBOTT-07P-178-0362047-00

PATIENT
  Sex: Male
  Weight: 67 kg

DRUGS (8)
  1. ZEMPLAR [Suspect]
     Indication: HYPERPARATHYROIDISM SECONDARY
     Route: 042
     Dates: start: 20060501, end: 20070227
  2. CARVEDILOL [Concomitant]
     Indication: CARDIAC FAILURE
     Route: 048
  3. AMLODIPINE [Concomitant]
     Indication: HYPERTENSION
     Route: 048
  4. BENUTREX [Concomitant]
     Indication: VITAMIN SUPPLEMENTATION
     Route: 042
  5. FOLIC ACID [Concomitant]
     Indication: VITAMIN SUPPLEMENTATION
     Route: 048
  6. EPOGEN [Concomitant]
     Indication: ANAEMIA
     Route: 058
  7. CALCIUM CARBONATE [Concomitant]
     Indication: BLOOD PHOSPHORUS INCREASED
     Route: 048
     Dates: start: 20060501, end: 20070226
  8. OMEPRAZOLE [Concomitant]
     Indication: GASTROOESOPHAGEAL REFLUX DISEASE
     Route: 048

REACTIONS (6)
  - DISCOMFORT [None]
  - DYSPNOEA [None]
  - LOWER RESPIRATORY TRACT INFECTION [None]
  - RESPIRATORY DISORDER [None]
  - RETINAL OPERATION [None]
  - SEPTIC SHOCK [None]
